FAERS Safety Report 19307340 (Version 1)
Quarter: 2021Q2

REPORT INFORMATION
  Report Type: Spontaneous
  Country: US (occurrence: US)
  Receive Date: 20210526
  Receipt Date: 20210526
  Transmission Date: 20210717
  Serious: No
  Sender: FDA-Public Use
  Company Number: None

PATIENT
  Age: 36 Year
  Sex: Female

DRUGS (2)
  1. ETESEVIMAB. [Suspect]
     Active Substance: ETESEVIMAB
     Indication: COVID-19
     Dosage: ?          OTHER FREQUENCY:1 DOSE;?
     Route: 042
     Dates: start: 20210525, end: 20210525
  2. BAMLANIVIMAB. [Suspect]
     Active Substance: BAMLANIVIMAB
     Indication: COVID-19
     Dosage: ?          OTHER FREQUENCY:1 DOSE;?
     Route: 042
     Dates: start: 20210525, end: 20210525

REACTIONS (2)
  - Seizure [None]
  - Tremor [None]

NARRATIVE: CASE EVENT DATE: 20210525
